FAERS Safety Report 11940647 (Version 1)
Quarter: 2016Q1

REPORT INFORMATION
  Report Type: Spontaneous
  Country: DE (occurrence: DE)
  Receive Date: 20160122
  Receipt Date: 20160122
  Transmission Date: 20160526
  Serious: Yes (Other)
  Sender: FDA-Public Use
  Company Number: PHHY2015DE146791

PATIENT
  Age: 65 Year
  Sex: Female

DRUGS (4)
  1. LETROZOLE. [Suspect]
     Active Substance: LETROZOLE
     Indication: BREAST CANCER METASTATIC
     Dosage: 2.5 MG, EVERY 4 WEEK
     Route: 065
     Dates: start: 20140125, end: 20140226
  2. AFINITOR [Suspect]
     Active Substance: EVEROLIMUS
     Indication: BREAST CANCER METASTATIC
     Dosage: 10 MG, QD
     Route: 065
     Dates: start: 20140227, end: 20151021
  3. BONDRONAT//IBANDRONATE SODIUM [Concomitant]
     Indication: BREAST CANCER METASTATIC
     Dosage: EVERY FOUR WEEKS
     Route: 065
  4. EXEMESTANE. [Suspect]
     Active Substance: EXEMESTANE
     Indication: BREAST CANCER METASTATIC
     Dosage: 25 MG, UNK
     Route: 048
     Dates: start: 20140227, end: 20151021

REACTIONS (9)
  - Hyperlipidaemia [Recovering/Resolving]
  - Metastases to bone [Not Recovered/Not Resolved]
  - Inappropriate schedule of drug administration [Unknown]
  - Breast cancer metastatic [Recovering/Resolving]
  - Malignant neoplasm progression [Recovering/Resolving]
  - Wound infection [Recovering/Resolving]
  - Metastases to spine [Not Recovered/Not Resolved]
  - Ulcer haemorrhage [Recovering/Resolving]
  - Blood cholesterol increased [Recovering/Resolving]

NARRATIVE: CASE EVENT DATE: 20140124
